FAERS Safety Report 8046213-1 (Version None)
Quarter: 2012Q1

REPORT INFORMATION
  Report Type: 
  Country: None (occurrence: None)
  Receive Date: 20120113
  Receipt Date: 20120111
  Transmission Date: 20120608
  Serious: Yes (Other)
  Sender: FDA-Public Use
  Company Number: US-PFIZER INC-2012009587

PATIENT
  Sex: Female

DRUGS (2)
  1. XANAX [Suspect]
     Dosage: UNK
     Dates: start: 19980101
  2. EFFEXOR XR [Suspect]
     Dosage: UNK

REACTIONS (2)
  - BREAST CANCER [None]
  - COMA [None]
